FAERS Safety Report 4975215-4 (Version None)
Quarter: 2006Q2

REPORT INFORMATION
  Report Type: 
  Country: None (occurrence: None)
  Receive Date: 20060418
  Receipt Date: 20060210
  Transmission Date: 20061013
  Serious: Yes (Death)
  Sender: FDA-Public Use
  Company Number: FR-BRISTOL-MYERS SQUIBB COMPANY-13280086

PATIENT
  Age: 47 Year
  Sex: Male

DRUGS (6)
  1. ORENCIA [Suspect]
     Indication: RHEUMATOID ARTHRITIS
     Route: 042
     Dates: start: 20051116, end: 20060208
  2. CORTANCYL [Concomitant]
     Dates: start: 20041101
  3. MOPRAL [Concomitant]
     Dates: start: 20000101
  4. LASILIX [Concomitant]
     Dates: start: 20020101
  5. COAPROVEL [Concomitant]
     Indication: HYPERTENSION
     Dates: start: 20020101
  6. ZALDIAR [Concomitant]
     Dosage: DOSAGE FORM = TABS
     Dates: start: 20050101

REACTIONS (1)
  - CARDIAC ARREST [None]
